FAERS Safety Report 9464779 (Version 5)
Quarter: 2014Q1

REPORT INFORMATION
  Report Type: Report from Study
  Country: ES (occurrence: ES)
  Receive Date: 20130819
  Receipt Date: 20140328
  Transmission Date: 20141002
  Serious: Yes (Death, Other)
  Sender: FDA-Public Use
  Company Number: ES-VERTEX PHARMACEUTICALS INC-2013-008867

PATIENT
  Sex: 0

DRUGS (6)
  1. TELAPREVIR [Suspect]
     Indication: HEPATITIS C
     Dosage: TABLET
     Route: 048
  2. RIBAVIRIN [Suspect]
     Indication: HEPATITIS C
     Dosage: UNK
     Route: 065
  3. RIBAVIRIN [Suspect]
     Dosage: DOSAGE FORM: UNKNOWN
  4. PEGINTERFERON ALFA [Suspect]
     Indication: HEPATITIS C
     Dosage: UNK
     Route: 065
  5. PEGINTERFERON ALFA [Suspect]
     Dosage: DOSAGE FORM: UNKNOWN
  6. IMMUNO SUPPRESSANT DRUG [Interacting]
     Indication: TRANSPLANT

REACTIONS (22)
  - Coma hepatic [Fatal]
  - Death [Fatal]
  - Liver disorder [Unknown]
  - Blood disorder [Unknown]
  - Gastrointestinal disorder [Unknown]
  - Hepatitis cholestatic [Unknown]
  - Drug interaction [Unknown]
  - Adverse event [Unknown]
  - Viral infection [Unknown]
  - Liver transplant rejection [Unknown]
  - Neutropenia [Unknown]
  - Thrombocytopenia [Unknown]
  - Anaemia [Unknown]
  - Skin reaction [Unknown]
  - Condition aggravated [Unknown]
  - Respiratory tract infection [Unknown]
  - Genitourinary tract infection [Unknown]
  - Anorectal disorder [Unknown]
  - Off label use [Unknown]
  - Fungal infection [Unknown]
  - Proctalgia [Unknown]
  - Skin reaction [Unknown]
